FAERS Safety Report 13366230 (Version 2)
Quarter: 2017Q2

REPORT INFORMATION
  Report Type: Spontaneous
  Country: DE (occurrence: DE)
  Receive Date: 20170323
  Receipt Date: 20170427
  Transmission Date: 20170830
  Serious: Yes (Hospitalization, Other)
  Sender: FDA-Public Use
  Company Number: DE-BAYER-2016-190101

PATIENT
  Age: 24 Year
  Sex: Female

DRUGS (1)
  1. JAYDESS [Suspect]
     Active Substance: LEVONORGESTREL
     Indication: CONTRACEPTION
     Dosage: 14 MCG/24HR, CONT
     Route: 015
     Dates: start: 20160819, end: 20160905

REACTIONS (6)
  - Pain [Recovered/Resolved]
  - Urinary tract infection [None]
  - Cardiovascular disorder [None]
  - Procedural pain [None]
  - Endometritis [Recovered/Resolved]
  - Pyelitis [None]

NARRATIVE: CASE EVENT DATE: 20160819
